FAERS Safety Report 23040647 (Version 1)
Quarter: 2023Q4

REPORT INFORMATION
  Report Type: Report from Study
  Country: BR (occurrence: BR)
  Receive Date: 20231006
  Receipt Date: 20231006
  Transmission Date: 20240110
  Serious: Yes (Other)
  Sender: FDA-Public Use
  Company Number: BR-Merck Healthcare KGaA-2023457197

PATIENT
  Age: 23 Year
  Sex: Female

DRUGS (4)
  1. MAVENCLAD [Suspect]
     Active Substance: CLADRIBINE
     Indication: Multiple sclerosis
     Dosage: YEAR ONE MONTH ONE THERAPY: 2 TABLETS ON DAYS 1 AND 2 AND 1 TABLET ON DAY 3 TO 5.
     Route: 048
     Dates: start: 20210614, end: 20210618
  2. MAVENCLAD [Suspect]
     Active Substance: CLADRIBINE
     Dosage: YEAR ONE MONTH TWO THERAPY: 2 TABLETS ON DAYS 1 AND 2 AND 1 TABLET ON DAY 3 TO 5
     Route: 048
     Dates: start: 20220714, end: 20220718
  3. MAVENCLAD [Suspect]
     Active Substance: CLADRIBINE
     Dosage: YEAR TWO MONTH ONE THERAPY:2 TABLETS ON DAYS 1 AND 2 AND 1 TABLET ON DAY 3 TO 5
     Route: 048
     Dates: start: 20220627, end: 20220701
  4. MAVENCLAD [Suspect]
     Active Substance: CLADRIBINE
     Dosage: YEAR TWO MONTH TWO THERAPY: 2 TABLETS ON DAYS 1 AND 2 AND 1 TABLET ON DAY 3 TO 5
     Route: 048
     Dates: start: 20220727, end: 20220731

REACTIONS (4)
  - Gestational diabetes [Unknown]
  - Anaemia [Unknown]
  - Live birth [Recovered/Resolved]
  - Maternal exposure before pregnancy [Recovered/Resolved]

NARRATIVE: CASE EVENT DATE: 20221201
